FAERS Safety Report 18939596 (Version 1)
Quarter: 2021Q1

REPORT INFORMATION
  Report Type: Spontaneous
  Country: AT (occurrence: AT)
  Receive Date: 20210224
  Receipt Date: 20210224
  Transmission Date: 20210420
  Serious: Yes (Other)
  Sender: FDA-Public Use
  Company Number: AT-PFIZER INC-2020504877

PATIENT
  Age: 85 Year
  Sex: Female
  Weight: 65 kg

DRUGS (10)
  1. RISPERDAL [Suspect]
     Active Substance: RISPERIDONE
     Indication: VASCULAR DEMENTIA
     Dosage: 1.5 MG
     Route: 065
     Dates: start: 20200815, end: 20200817
  2. SEROQUEL [Suspect]
     Active Substance: QUETIAPINE FUMARATE
     Dosage: 25 MG
     Route: 065
     Dates: start: 20200815, end: 20200821
  3. CIRCADIN [Suspect]
     Active Substance: MELATONIN
     Dosage: 2 MG
     Route: 065
     Dates: start: 20200815, end: 20200904
  4. KALIUM [POTASSIUM] [Suspect]
     Active Substance: POTASSIUM
     Dosage: 1200 MG
     Route: 065
     Dates: start: 20200815, end: 20200904
  5. SEROQUEL [Suspect]
     Active Substance: QUETIAPINE FUMARATE
     Dosage: 50 MG
     Route: 065
     Dates: start: 20200902, end: 20200904
  6. NOVALGIN (METAMIZOLE SODIUM) [Suspect]
     Active Substance: METAMIZOLE SODIUM
     Dosage: 1500 MG
     Route: 065
     Dates: start: 20200815, end: 20200904
  7. SORTIS [Suspect]
     Active Substance: ATORVASTATIN
     Dosage: 20 MG
     Route: 065
     Dates: start: 20200815, end: 20200904
  8. PANTOLOC [Suspect]
     Active Substance: PANTOPRAZOLE SODIUM
     Dosage: 40 MG
     Route: 065
     Dates: start: 20200815, end: 20200904
  9. CONCOR [Suspect]
     Active Substance: BISOPROLOL FUMARATE
     Dosage: 7.5 MG
     Route: 065
     Dates: start: 20200815, end: 20200904
  10. LIXIANA [Suspect]
     Active Substance: EDOXABAN TOSYLATE
     Dosage: 30 MG
     Route: 065
     Dates: start: 20200815, end: 20200904

REACTIONS (1)
  - Extrapyramidal disorder [Recovered/Resolved]

NARRATIVE: CASE EVENT DATE: 20200818
